FAERS Safety Report 5206344-8 (Version None)
Quarter: 2006Q4

REPORT INFORMATION
  Report Type: 
  Country: None (occurrence: None)
  Receive Date: 20061026
  Receipt Date: 20060728
  Transmission Date: 20070319
  Serious: Yes (Hospitalization)
  Sender: FDA-Public Use
  Company Number: 2006092799

PATIENT
  Age: 81 Year
  Sex: Female

DRUGS (1)
  1. LYRICA [Suspect]
     Indication: DRUG USE FOR UNKNOWN INDICATION

REACTIONS (3)
  - NAUSEA [None]
  - RETCHING [None]
  - VOMITING [None]
